FAERS Safety Report 7797175-3 (Version None)
Quarter: 2011Q4

REPORT INFORMATION
  Report Type: 
  Country: None (occurrence: None)
  Receive Date: 20111005
  Receipt Date: 20110923
  Transmission Date: 20120403
  Serious: Yes (Other)
  Sender: FDA-Public Use
  Company Number: PHHY2011BR85323

PATIENT
  Age: 52 Year
  Sex: Female

DRUGS (4)
  1. AMLODIPINE W/HYDROCHLOROTHIAZIDE [Concomitant]
     Dosage: 1 DF,(5/25MG) DAILY
  2. DIOVAN [Suspect]
     Dosage: 160 MG, UNK
  3. ENALAPRIL MALEATE [Concomitant]
     Dosage: 20 MG, (2 TABLETS DAILY)
  4. HYDROCHLOROTHIAZIDE [Concomitant]
     Dosage: 25 MG, DAILY

REACTIONS (4)
  - BLOOD CHOLESTEROL INCREASED [None]
  - LOW DENSITY LIPOPROTEIN INCREASED [None]
  - HYPERTENSIVE CRISIS [None]
  - WEIGHT INCREASED [None]
